FAERS Safety Report 6408294-8 (Version None)
Quarter: 2009Q4

REPORT INFORMATION
  Report Type: 
  Country: None (occurrence: None)
  Receive Date: 20091021
  Receipt Date: 20091012
  Transmission Date: 20100525
  Serious: No
  Sender: FDA-Public Use
  Company Number: US-JNJFOC-20091004362

PATIENT
  Sex: Female
  Weight: 84.82 kg

DRUGS (5)
  1. DURAGESIC-100 [Suspect]
     Indication: BACK PAIN
     Dosage: 50 MCG AND 75 MCG PATCH
     Route: 062
     Dates: start: 20080101, end: 20091001
  2. DURAGESIC-100 [Suspect]
     Route: 062
     Dates: start: 20091001
  3. DURAGESIC-100 [Suspect]
     Route: 062
     Dates: start: 20091001
  4. OXYCODONE [Concomitant]
     Indication: PAIN
     Route: 048
  5. FLEXERIL [Concomitant]
     Indication: MUSCLE DISORDER
     Route: 048

REACTIONS (3)
  - BACK PAIN [None]
  - DRUG INEFFECTIVE [None]
  - INAPPROPRIATE SCHEDULE OF DRUG ADMINISTRATION [None]
